FAERS Safety Report 21131174 (Version 2)
Quarter: 2022Q3

REPORT INFORMATION
  Report Type: Spontaneous
  Country: GB (occurrence: GB)
  Receive Date: 20220726
  Receipt Date: 20220908
  Transmission Date: 20221027
  Serious: Yes (Other)
  Sender: FDA-Public Use
  Company Number: GB-EXELIXIS-CABO-22049937

PATIENT
  Age: 13 Year
  Sex: Male

DRUGS (5)
  1. CABOMETYX [Suspect]
     Active Substance: CABOZANTINIB S-MALATE
     Indication: Nephroblastoma
     Dosage: 40 MG, QD
     Route: 048
     Dates: start: 20220322, end: 20220704
  2. CABOMETYX [Suspect]
     Active Substance: CABOZANTINIB S-MALATE
     Dosage: REDUCED DOSE
     Route: 048
     Dates: start: 20220722
  3. COTRIMOXAZOLE [Concomitant]
     Active Substance: SULFAMETHOXAZOLE\TRIMETHOPRIM
     Indication: Antifungal prophylaxis
  4. ONDANSETRON [Concomitant]
     Active Substance: ONDANSETRON
     Indication: Nausea
  5. MORPHINE [Concomitant]
     Active Substance: MORPHINE
     Indication: Pain

REACTIONS (3)
  - Myositis [Recovered/Resolved]
  - Therapy partial responder [Unknown]
  - Off label use [Unknown]

NARRATIVE: CASE EVENT DATE: 20220530
